FAERS Safety Report 5002381-7 (Version None)
Quarter: 2006Q2

REPORT INFORMATION
  Report Type: 
  Country: None (occurrence: None)
  Receive Date: 20060512
  Receipt Date: 20060316
  Transmission Date: 20061013
  Serious: Yes (Other)
  Sender: FDA-Public Use
  Company Number: GBR-2006-0002174

PATIENT
  Age: 74 Year
  Sex: Female
  Weight: 90 kg

DRUGS (3)
  1. OXYCODONE HCL [Suspect]
     Indication: DRUG USE FOR UNKNOWN INDICATION
  2. LYRICA [Suspect]
     Indication: SCIATICA
     Dosage: 30 MG, BID, ORAL
     Route: 048
     Dates: start: 20041005
  3. BUPRENORPHINE TRANDERMAL SYSTEM (BUPRENORPHINE) [Concomitant]

REACTIONS (3)
  - DRUG INTERACTION [None]
  - MUSCLE TWITCHING [None]
  - TREMOR [None]
